FAERS Safety Report 7572302-1 (Version None)
Quarter: 2011Q2

REPORT INFORMATION
  Report Type: 
  Country: None (occurrence: None)
  Receive Date: 20110624
  Receipt Date: 20110615
  Transmission Date: 20111010
  Serious: Yes (Hospitalization)
  Sender: FDA-Public Use
  Company Number: PHHO2009CZ05770

PATIENT
  Sex: Male
  Weight: 83.7 kg

DRUGS (3)
  1. PREDNISONE [Concomitant]
     Indication: RENAL TRANSPLANT
  2. CERTICAN [Suspect]
     Indication: RENAL TRANSPLANT
     Dosage: 1.5 MG, BID
     Route: 048
     Dates: start: 20090221
  3. AEB071 [Suspect]
     Indication: RENAL TRANSPLANT
     Dosage: 300 MG, BID
     Route: 048
     Dates: start: 20080423

REACTIONS (3)
  - KIDNEY TRANSPLANT REJECTION [None]
  - DRUG INEFFECTIVE [None]
  - POST PROCEDURAL HAEMORRHAGE [None]
